FAERS Safety Report 9168471 (Version 1)
Quarter: 2013Q1

REPORT INFORMATION
  Report Type: Report from Study
  Country: FR (occurrence: FR)
  Receive Date: 20130318
  Receipt Date: 20130318
  Transmission Date: 20140127
  Serious: Yes (Disabling, Other)
  Sender: FDA-Public Use
  Company Number: FR-ASTRAZENECA-2013SE07595

PATIENT
  Age: 52 Year
  Sex: Female

DRUGS (4)
  1. SYMBICORT TBH [Suspect]
     Indication: ASTHMA
     Dosage: 320/9, BID
     Route: 055
  2. SYMBICORT TBH [Suspect]
     Indication: ASTHMA
     Dosage: 400/12 MCG, INHALATIONS 60, BID
     Route: 055
  3. SYMBICORT TBH [Suspect]
     Indication: ASTHMA
     Dosage: 320/9 MCG, BID
     Route: 055
  4. VENTOLINE [Concomitant]

REACTIONS (8)
  - Asthma [Unknown]
  - Activities of daily living impaired [Unknown]
  - Asthma [Unknown]
  - Dysgeusia [Unknown]
  - Sleep disorder due to a general medical condition [Unknown]
  - Performance status decreased [Unknown]
  - Exercise tolerance decreased [Unknown]
  - Intentional drug misuse [Unknown]
